FAERS Safety Report 6887080-9 (Version None)
Quarter: 2010Q3

REPORT INFORMATION
  Report Type: 
  Country: None (occurrence: None)
  Receive Date: 20100730
  Receipt Date: 20100722
  Transmission Date: 20110219
  Serious: Yes (Hospitalization, Other)
  Sender: FDA-Public Use
  Company Number: US-SANOFI-AVENTIS-2010SA033795

PATIENT
  Sex: Female
  Weight: 96.2 kg

DRUGS (27)
  1. PLAVIX [Suspect]
     Route: 048
     Dates: start: 20000101, end: 20100619
  2. PLAVIX [Suspect]
     Route: 048
     Dates: start: 20000101, end: 20100619
  3. PLAVIX [Suspect]
     Indication: THROMBOSIS PROPHYLAXIS
     Route: 048
     Dates: start: 20000101, end: 20100619
  4. PLAVIX [Suspect]
     Route: 048
     Dates: start: 20000101, end: 20100619
  5. PLAVIX [Suspect]
     Route: 048
     Dates: start: 20100623
  6. PLAVIX [Suspect]
     Route: 048
     Dates: start: 20100623
  7. PLAVIX [Suspect]
     Route: 048
     Dates: start: 20100623
  8. PLAVIX [Suspect]
     Route: 048
     Dates: start: 20100623
  9. SIMVASTATIN [Concomitant]
  10. COREG [Concomitant]
  11. COREG [Concomitant]
  12. ASPIRIN [Concomitant]
  13. AMARYL [Concomitant]
     Indication: BLOOD GLUCOSE INCREASED
  14. BUMETANIDE [Concomitant]
     Indication: FLUID RETENTION
  15. CASCARA SAGRADA [Concomitant]
  16. CENTRUM SILVER [Concomitant]
  17. COENZYME Q10 [Concomitant]
  18. LEVOTHYROXINE SODIUM [Concomitant]
     Indication: THYROID HORMONE REPLACEMENT THERAPY
  19. LISINOPRIL [Concomitant]
     Indication: BLOOD PRESSURE
  20. POTASSIUM [Concomitant]
  21. PSYLLIUM HUSK [Concomitant]
  22. COLACE [Concomitant]
  23. LECITHIN [Concomitant]
  24. VITAMIN D [Concomitant]
     Dosage: DOSE:5000 UNIT(S)
  25. AMBIEN CR [Concomitant]
  26. ALEVE [Concomitant]
     Indication: PAIN
  27. HYDROCODONE BITARTRATE [Concomitant]
     Indication: PAIN

REACTIONS (11)
  - ASTHENIA [None]
  - CARDIAC FAILURE CONGESTIVE [None]
  - CHOLELITHIASIS [None]
  - CHRONIC SINUSITIS [None]
  - CONTUSION [None]
  - HEADACHE [None]
  - HERPES ZOSTER [None]
  - INTESTINAL OBSTRUCTION [None]
  - MALAISE [None]
  - PAIN [None]
  - UNDERDOSE [None]
